FAERS Safety Report 19135844 (Version 2)
Quarter: 2021Q2

REPORT INFORMATION
  Report Type: Report from Study
  Country: AR (occurrence: AR)
  Receive Date: 20210414
  Receipt Date: 20210421
  Transmission Date: 20210717
  Serious: Yes (Death, Hospitalization, Other)
  Sender: FDA-Public Use
  Company Number: NVSC2021AR083861

PATIENT
  Sex: Female

DRUGS (5)
  1. LETROZOLE. [Suspect]
     Active Substance: LETROZOLE
     Indication: BREAST CANCER METASTATIC
     Dosage: UNK
     Route: 048
     Dates: start: 202101
  2. KISQALI [Suspect]
     Active Substance: RIBOCICLIB
     Indication: BREAST CANCER METASTATIC
     Dosage: 600 MG, QD
     Route: 048
     Dates: start: 20210303
  3. RIBOCICLIB. [Suspect]
     Active Substance: RIBOCICLIB
     Indication: BREAST CANCER METASTATIC
     Dosage: UNK
     Route: 048
     Dates: start: 202101
  4. OMEPRAZOLE. [Concomitant]
     Active Substance: OMEPRAZOLE
     Indication: PROPHYLAXIS
     Dosage: UNK
     Route: 065
     Dates: start: 202101
  5. RELIVERAN [Concomitant]
     Indication: VOMITING
     Dosage: UNK
     Route: 065
     Dates: start: 202101

REACTIONS (13)
  - Pain [Unknown]
  - Malignant neoplasm progression [Fatal]
  - Affect lability [Fatal]
  - Haemorrhage [Unknown]
  - Metastases to stomach [Unknown]
  - Feeding disorder [Unknown]
  - Renal failure [Unknown]
  - Breast cancer metastatic [Fatal]
  - Decreased appetite [Fatal]
  - Asthenia [Fatal]
  - General physical health deterioration [Unknown]
  - Complication of device removal [Unknown]
  - Wrong technique in product usage process [Unknown]
